FAERS Safety Report 4582951-0 (Version None)
Quarter: 2005Q1

REPORT INFORMATION
  Report Type: 
  Country: None (occurrence: None)
  Receive Date: 20050127
  Receipt Date: 20040917
  Transmission Date: 20050727
  Serious: No
  Sender: FDA-Public Use
  Company Number: USA040978538

PATIENT
  Age: 35 Year
  Sex: Female
  Weight: 64 kg

DRUGS (2)
  1. STRATTERA [Suspect]
     Indication: ATTENTION DEFICIT/HYPERACTIVITY DISORDER
     Dosage: 25 MG/ 1 DAY
     Dates: start: 20040916
  2. YASMIN [Concomitant]

REACTIONS (4)
  - FATIGUE [None]
  - HEADACHE [None]
  - INSOMNIA [None]
  - THINKING ABNORMAL [None]
